FAERS Safety Report 18898249 (Version 1)
Quarter: 2021Q1

REPORT INFORMATION
  Report Type: Spontaneous
  Country: DK (occurrence: DK)
  Receive Date: 20210216
  Receipt Date: 20210216
  Transmission Date: 20210420
  Serious: Yes (Other)
  Sender: FDA-Public Use
  Company Number: DK-INCYTE CORPORATION-2021IN001170

PATIENT

DRUGS (5)
  1. HYDROXYUREA. [Concomitant]
     Active Substance: HYDROXYUREA
     Indication: PRODUCT USED FOR UNKNOWN INDICATION
     Dosage: UNK
     Route: 065
  2. JAKAVI [Suspect]
     Active Substance: RUXOLITINIB
     Indication: POLYCYTHAEMIA VERA
     Dosage: 20 MG
     Route: 065
     Dates: start: 201801
  3. MAGNYL [ACETYLSALICYLIC ACID;MAGNESIUM HYDROXIDE] [Concomitant]
     Indication: PRODUCT USED FOR UNKNOWN INDICATION
     Dosage: UNK
     Route: 065
  4. JAKAVI [Suspect]
     Active Substance: RUXOLITINIB
     Dosage: 30 MG
     Route: 065
     Dates: start: 202007
  5. VITAMIN K [PHYTOMENADIONE] [Concomitant]
     Indication: PRODUCT USED FOR UNKNOWN INDICATION
     Dosage: UNK
     Route: 065

REACTIONS (10)
  - Pain in extremity [Unknown]
  - White blood cell count increased [Unknown]
  - Diverticulum [Unknown]
  - Haemoglobin decreased [Unknown]
  - Fatigue [Unknown]
  - Gastrointestinal haemorrhage [Unknown]
  - Hyperhidrosis [Unknown]
  - Gastric ulcer [Unknown]
  - Splenomegaly [Unknown]
  - Weight decreased [Unknown]

NARRATIVE: CASE EVENT DATE: 201809
